FAERS Safety Report 9261792 (Version 1)
Quarter: 2013Q2

REPORT INFORMATION
  Report Type: Spontaneous
  Country: US (occurrence: US)
  Receive Date: 20130429
  Receipt Date: 20130429
  Transmission Date: 20140414
  Serious: No
  Sender: FDA-Public Use
  Company Number: US-TEVA-400333USA

PATIENT
  Age: 62 Year
  Sex: Female
  Weight: 86.26 kg

DRUGS (9)
  1. PROAIR HFA [Suspect]
     Indication: BRONCHITIS
     Dates: start: 20130301
  2. HYDROCHLOROTHIAZIDE [Concomitant]
     Indication: HYPERTENSION
     Route: 048
  3. IODIPINE [Concomitant]
     Indication: HYPERTENSION
     Route: 048
  4. BUSPIRONE [Concomitant]
     Indication: NERVOUSNESS
     Route: 048
  5. LISINOPRIL [Concomitant]
     Indication: HYPERTENSION
     Route: 048
  6. CELEBREX [Concomitant]
     Indication: ARTHRITIS
     Route: 048
  7. TRICOR [Concomitant]
     Indication: HYPERCHOLESTEROLAEMIA
     Route: 048
  8. CELEXA [Concomitant]
     Indication: DEPRESSION
     Route: 048
  9. PRAVASTATIN [Concomitant]
     Indication: HYPERCHOLESTEROLAEMIA
     Route: 048

REACTIONS (3)
  - Sinusitis [Unknown]
  - Bronchitis [Unknown]
  - Intentional overdose [Unknown]
